FAERS Safety Report 6240279-7 (Version None)
Quarter: 2009Q2

REPORT INFORMATION
  Report Type: 
  Country: None (occurrence: None)
  Receive Date: 20090623
  Receipt Date: 20080529
  Transmission Date: 20091009
  Serious: No
  Sender: FDA-Public Use
  Company Number: US-ASTRAZENECA-2008UW10837

PATIENT
  Age: 2 Year
  Sex: Male
  Weight: 29.5 kg

DRUGS (2)
  1. PULMICORT RESPULES [Suspect]
     Indication: NASOPHARYNGITIS
     Route: 055
     Dates: start: 20060101
  2. ALBUTEROL [Concomitant]

REACTIONS (2)
  - DISTURBANCE IN ATTENTION [None]
  - TREMOR [None]
